FAERS Safety Report 4835228-X (Version None)
Quarter: 2005Q4

REPORT INFORMATION
  Report Type: 
  Country: None (occurrence: None)
  Receive Date: 20051114
  Receipt Date: 20051101
  Transmission Date: 20060501
  Serious: Yes (Death, Other)
  Sender: FDA-Public Use
  Company Number: USA0509107060

PATIENT
  Age: 16 Year
  Sex: Male

DRUGS (10)
  1. HUMATROPE [Suspect]
     Dosage: 1 MG DAY
  2. ROCALTROL [Concomitant]
  3. FOSAMAX [Concomitant]
  4. SYNTHROID [Concomitant]
  5. ALDACTONE [Concomitant]
  6. DIGOXIN [Concomitant]
  7. ASPIRIN [Concomitant]
  8. ENALAPRIL [Concomitant]
  9. DIPHENOXYLATE HYDROCHLORIDE [Concomitant]
  10. PREVACID [Concomitant]

REACTIONS (3)
  - CARDIAC DISORDER [None]
  - CARDIAC PROCEDURE COMPLICATION [None]
  - CONDITION AGGRAVATED [None]
